FAERS Safety Report 5745691-8 (Version None)
Quarter: 2008Q2

REPORT INFORMATION
  Report Type: 
  Country: None (occurrence: None)
  Receive Date: 20080521
  Receipt Date: 20071206
  Transmission Date: 20081010
  Serious: No
  Sender: FDA-Public Use
  Company Number: US-BOEHRINGER INGELHEIM GMBH, GERMANY-2007-BP-04437BP

PATIENT
  Sex: Male
  Weight: 73 kg

DRUGS (23)
  1. MIRAPEX [Suspect]
     Indication: PARKINSON'S DISEASE
     Dates: start: 19991201, end: 20021201
  2. HYDROCODONE BITARTRATE [Concomitant]
     Dates: start: 20000501
  3. CYCLOBENZAPRINE HCL [Concomitant]
  4. VALIUM [Concomitant]
     Dates: start: 20000101
  5. TRIHEXYPHENIDYL HCL [Concomitant]
     Indication: PARKINSON'S DISEASE
     Dates: start: 20030424
  6. PERCOCET [Concomitant]
     Indication: BACK PAIN
     Dates: start: 20030101
  7. FLEXERIL [Concomitant]
     Dates: start: 20020927
  8. VIOXX [Concomitant]
     Dates: start: 20000101
  9. WELLBUTRIN [Concomitant]
     Indication: DEPRESSION
     Dates: start: 20030414
  10. LEXAPRO [Concomitant]
     Indication: DEPRESSION
     Route: 048
     Dates: start: 20030101
  11. SINEMET CR [Concomitant]
     Indication: PARKINSON'S DISEASE
     Dates: start: 20020101
  12. ARTANE [Concomitant]
     Indication: PARKINSON'S DISEASE
     Dates: start: 20030101
  13. REMERON [Concomitant]
     Indication: PARKINSON'S DISEASE
     Dates: start: 20040601
  14. SINEMET [Concomitant]
     Indication: PARKINSON'S DISEASE
     Dates: start: 20021201
  15. PROPRANOLOL [Concomitant]
     Dates: start: 20000501
  16. MIRTAZAPINE [Concomitant]
     Indication: SLEEP DISORDER
     Dates: start: 20060701
  17. MIRTAZAPINE [Concomitant]
     Indication: DEPRESSION
  18. AMANTADINE HCL [Concomitant]
     Indication: PARKINSON'S DISEASE
     Dates: start: 20040201
  19. OXYCODONE HCL [Concomitant]
     Dates: start: 20041101
  20. MAXALT [Concomitant]
     Indication: MIGRAINE
     Dates: start: 20030529
  21. GLUCOPHAGE [Concomitant]
     Dates: start: 20030529
  22. ENDOCET [Concomitant]
     Dates: start: 20021001
  23. AVINZA [Concomitant]
     Dates: start: 20050701

REACTIONS (5)
  - ANXIETY [None]
  - DEPRESSION [None]
  - DRUG ABUSE [None]
  - OBSESSIVE-COMPULSIVE DISORDER [None]
  - PATHOLOGICAL GAMBLING [None]
